FAERS Safety Report 7457845-3 (Version None)
Quarter: 2011Q2

REPORT INFORMATION
  Report Type: 
  Country: None (occurrence: None)
  Receive Date: 20110504
  Receipt Date: 20110428
  Transmission Date: 20111010
  Serious: Yes (Life-Threatening)
  Sender: FDA-Public Use
  Company Number: PHHO2010MX09988

PATIENT
  Sex: Female
  Weight: 103 kg

DRUGS (4)
  1. ENALAPRIL [Concomitant]
     Indication: HYPERTENSION
  2. LEVOTHYROXINE SODIUM [Concomitant]
     Indication: HYPOTHYROIDISM
  3. AFINITOR [Suspect]
     Indication: METASTATIC RENAL CELL CARCINOMA
     Dosage: 5 MG / DAY
     Route: 048
     Dates: start: 20100415, end: 20100531
  4. LOSARTAN POTASSIUM [Concomitant]
     Indication: HYPERTENSION

REACTIONS (6)
  - DIARRHOEA [None]
  - GENERALISED ERYTHEMA [None]
  - HYPOTENSION [None]
  - DRUG HYPERSENSITIVITY [None]
  - PRURITUS GENERALISED [None]
  - DEHYDRATION [None]
